FAERS Safety Report 4767389-5 (Version None)
Quarter: 2005Q3

REPORT INFORMATION
  Report Type: 
  Country: None (occurrence: None)
  Receive Date: 20050913
  Receipt Date: 20050906
  Transmission Date: 20060218
  Serious: Yes (Life-Threatening, Disabling)
  Sender: FDA-Public Use
  Company Number: GB-MERCK-0509GBR00062

PATIENT
  Age: 62 Year
  Sex: Male

DRUGS (6)
  1. ZOCOR [Suspect]
     Route: 065
  2. METHOXSALEN [Suspect]
     Indication: MYCOSIS FUNGOIDES
     Route: 048
     Dates: start: 20050101, end: 20050531
  3. BISOPROLOL [Concomitant]
     Route: 065
  4. ASPIRIN [Concomitant]
     Route: 065
  5. TRAMADOL HYDROCHLORIDE [Concomitant]
     Route: 065
  6. DICLOFENAC [Concomitant]
     Route: 065

REACTIONS (1)
  - PNEUMONITIS [None]
